FAERS Safety Report 19428874 (Version 1)
Quarter: 2021Q2

REPORT INFORMATION
  Report Type: Spontaneous
  Country: US (occurrence: US)
  Receive Date: 20210617
  Receipt Date: 20210617
  Transmission Date: 20210717
  Serious: Yes (Other)
  Sender: FDA-Public Use
  Company Number: US-GLAXOSMITHKLINE-US2021GSK132022

PATIENT
  Sex: Female

DRUGS (2)
  1. ZANTAC [Suspect]
     Active Substance: RANITIDINE HYDROCHLORIDE
     Indication: OVERWEIGHT
     Dosage: UNK UNK, QD
     Route: 065
     Dates: start: 199901, end: 201601
  2. ZANTAC [Suspect]
     Active Substance: RANITIDINE HYDROCHLORIDE
     Indication: OVERWEIGHT
     Dosage: UNK UNK, QD
     Route: 065
     Dates: start: 199901, end: 201601

REACTIONS (2)
  - Uterine cancer [Unknown]
  - Breast cancer [Unknown]
